FAERS Safety Report 19470194 (Version 1)
Quarter: 2021Q2

REPORT INFORMATION
  Report Type: Spontaneous
  Country: US (occurrence: US)
  Receive Date: 20210629
  Receipt Date: 20210629
  Transmission Date: 20210717
  Serious: Yes (Life-Threatening, Hospitalization, Other)
  Sender: FDA-Public Use
  Company Number: US-SA-2021SA210804

PATIENT
  Age: 56 Year
  Sex: Female

DRUGS (5)
  1. ACETYLSALICYLIC ACID [Suspect]
     Active Substance: ASPIRIN
     Indication: ANTIPLATELET THERAPY
  2. HEPARIN [Suspect]
     Active Substance: HEPARIN SODIUM
     Dosage: BY DRIP
  3. PLAVIX [Suspect]
     Active Substance: CLOPIDOGREL BISULFATE
     Indication: ANTIPLATELET THERAPY
  4. TIROFIBAN [Suspect]
     Active Substance: TIROFIBAN
     Indication: ANTIPLATELET THERAPY
  5. BRILINTA [Suspect]
     Active Substance: TICAGRELOR
     Indication: ANTIPLATELET THERAPY

REACTIONS (14)
  - Pyrexia [Recovered/Resolved]
  - Haemoptysis [Recovered/Resolved]
  - Microcytic anaemia [Recovered/Resolved]
  - Leukocytosis [Recovered/Resolved]
  - Rhonchi [Recovered/Resolved]
  - Breath sounds abnormal [Recovered/Resolved]
  - Hyponatraemia [Recovered/Resolved]
  - Tachycardia [Recovered/Resolved]
  - Pulmonary alveolar haemorrhage [Recovered/Resolved]
  - Tachypnoea [Recovered/Resolved]
  - Brain natriuretic peptide increased [Recovered/Resolved]
  - Acute respiratory failure [Recovered/Resolved]
  - Lung infiltration [Recovered/Resolved]
  - Dyspnoea [Recovered/Resolved]
